FAERS Safety Report 24981544 (Version 2)
Quarter: 2025Q1

REPORT INFORMATION
  Report Type: Spontaneous
  Country: US (occurrence: US)
  Receive Date: 20250218
  Receipt Date: 20250224
  Transmission Date: 20250409
  Serious: Yes (Other)
  Sender: SUNOVION
  Company Number: US-SMPA-2025SPA001587

PATIENT

DRUGS (4)
  1. ORGOVYX [Suspect]
     Active Substance: RELUGOLIX
     Indication: Prostate cancer
     Dosage: 120 MG, QD (IN THE MORNING)
     Route: 048
     Dates: start: 202401
  2. TOPROL XL [Concomitant]
     Active Substance: METOPROLOL SUCCINATE
     Indication: Blood pressure abnormal
     Route: 065
  3. ELIQUIS [Concomitant]
     Active Substance: APIXABAN
     Indication: Anticoagulant therapy
     Route: 065
  4. PLAVIX [Concomitant]
     Active Substance: CLOPIDOGREL BISULFATE
     Indication: Anticoagulant therapy
     Route: 065

REACTIONS (9)
  - Hernia repair [Unknown]
  - Device related infection [Unknown]
  - Staphylococcal infection [Unknown]
  - Procedural failure [Unknown]
  - Impaired healing [Unknown]
  - Hot flush [Unknown]
  - Asthenia [Unknown]
  - Depression [Unknown]
  - Diarrhoea [Unknown]
